FAERS Safety Report 19752222 (Version 1)
Quarter: 2021Q3

REPORT INFORMATION
  Report Type: Spontaneous
  Country: GB (occurrence: GB)
  Receive Date: 20210826
  Receipt Date: 20210826
  Transmission Date: 20211014
  Serious: Yes (Other)
  Sender: FDA-Public Use
  Company Number: GB-GLAXOSMITHKLINE-GBCH2021056676

PATIENT
  Age: 23 Year
  Sex: Female
  Weight: 119.1 kg

DRUGS (4)
  1. CITALOPRAM [Concomitant]
     Active Substance: CITALOPRAM HYDROBROMIDE
     Indication: ILL-DEFINED DISORDER
     Dosage: UNKNOWN
  2. ORLISTAT. [Suspect]
     Active Substance: ORLISTAT
     Indication: WEIGHT DECREASED
     Dosage: 120MG
     Route: 048
     Dates: start: 20210816, end: 20210816
  3. PROPRANOLOL [Concomitant]
     Active Substance: PROPRANOLOL HYDROCHLORIDE
     Indication: ILL-DEFINED DISORDER
     Dosage: UNKNOWN
  4. FOLIC ACID. [Concomitant]
     Active Substance: FOLIC ACID
     Indication: ILL-DEFINED DISORDER
     Dosage: UNKNOWN

REACTIONS (1)
  - Vomiting [Not Recovered/Not Resolved]

NARRATIVE: CASE EVENT DATE: 20210816
